FAERS Safety Report 17372810 (Version 1)
Quarter: 2020Q1

REPORT INFORMATION
  Report Type: Spontaneous
  Country: US (occurrence: US)
  Receive Date: 20200205
  Receipt Date: 20200205
  Transmission Date: 20200409
  Serious: No
  Sender: FDA-Public Use
  Company Number: US-GALDERMA-US19066928

PATIENT
  Age: 78 Year
  Sex: Female

DRUGS (2)
  1. NEUTROGENA FACE SCRUB [Concomitant]
     Indication: PRODUCT USED FOR UNKNOWN INDICATION
     Route: 065
  2. SOOLANTRA [Suspect]
     Active Substance: IVERMECTIN
     Indication: ROSACEA
     Dosage: 1%
     Route: 061
     Dates: start: 201904

REACTIONS (2)
  - Hyposmia [Not Recovered/Not Resolved]
  - Hypogeusia [Not Recovered/Not Resolved]

NARRATIVE: CASE EVENT DATE: 201904
